FAERS Safety Report 9718111 (Version 1)
Quarter: 2013Q4

REPORT INFORMATION
  Report Type: Spontaneous
  Country: US (occurrence: US)
  Receive Date: 20131125
  Receipt Date: 20131125
  Transmission Date: 20140711
  Serious: No
  Sender: FDA-Public Use
  Company Number: US-VIVUS-2013V1000491

PATIENT
  Sex: Male
  Weight: 111.68 kg

DRUGS (7)
  1. QSYMIA 7.5MG/46MG [Suspect]
     Indication: WEIGHT DECREASED
     Route: 048
     Dates: end: 201305
  2. QSYMIA 3.75MG/23MG [Suspect]
     Indication: WEIGHT DECREASED
     Route: 048
     Dates: start: 201305
  3. ASPIRIN [Concomitant]
     Indication: PAIN
     Route: 048
  4. TYLENOL [Concomitant]
     Indication: PAIN
     Route: 048
  5. IBUPROFEN [Concomitant]
     Indication: PAIN
     Route: 048
  6. UNSPECIFIED OVER-THE-COUNTER HEARTBURN MEDICATION [Concomitant]
     Indication: DYSPEPSIA
     Route: 048
  7. AMBIEN [Concomitant]
     Indication: INSOMNIA
     Route: 048

REACTIONS (5)
  - Laceration [Unknown]
  - Feeling abnormal [Recovered/Resolved]
  - Gastroenteritis viral [Recovered/Resolved]
  - Diarrhoea [Unknown]
  - Palpitations [Not Recovered/Not Resolved]
